FAERS Safety Report 9573788 (Version 2)
Quarter: 2013Q4

REPORT INFORMATION
  Report Type: Spontaneous
  Country: US (occurrence: US)
  Receive Date: 20131001
  Receipt Date: 20131001
  Transmission Date: 20140711
  Serious: No
  Sender: FDA-Public Use
  Company Number: US-PURDUE-USA-2012-0083152

PATIENT
  Age: 69 Year
  Sex: Female

DRUGS (1)
  1. BUTRANS [Suspect]
     Indication: PAIN
     Dosage: 5 MCG, Q1H
     Route: 062
     Dates: start: 20120221, end: 20120227

REACTIONS (3)
  - Extra dose administered [Unknown]
  - Dyspnoea [Recovered/Resolved]
  - Product adhesion issue [Unknown]
